FAERS Safety Report 8911678 (Version 5)
Quarter: 2013Q4

REPORT INFORMATION
  Report Type: Spontaneous
  Country: US (occurrence: US)
  Receive Date: 20121115
  Receipt Date: 20131027
  Transmission Date: 20140711
  Serious: Yes (Hospitalization, Other)
  Sender: FDA-Public Use
  Company Number: US-009507513-1211USA005256

PATIENT
  Age: 51 Year
  Sex: Female
  Weight: 94.33 kg

DRUGS (3)
  1. PEGINTRON [Suspect]
     Indication: HEPATITIS C
     Dosage: UNK
     Dates: start: 20120706, end: 2012
  2. REBETOL [Suspect]
     Indication: HEPATITIS C
     Dosage: UNK
     Dates: start: 20120706, end: 20121115
  3. INCIVEK [Suspect]
     Dosage: UNK
     Dates: start: 20120706, end: 20120928

REACTIONS (10)
  - Pyrexia [Unknown]
  - Ear pain [Recovered/Resolved]
  - Transfusion [Unknown]
  - Feeling cold [Unknown]
  - Headache [Recovered/Resolved]
  - Burning sensation [Unknown]
  - Transfusion [Unknown]
  - Nasal discomfort [Unknown]
  - Anaemia [Recovered/Resolved]
  - Thinking abnormal [Unknown]
